FAERS Safety Report 10097483 (Version 3)
Quarter: 2014Q2

REPORT INFORMATION
  Report Type: Report from Study
  Country: JP (occurrence: JP)
  Receive Date: 20140423
  Receipt Date: 20140508
  Transmission Date: 20141212
  Serious: Yes (Hospitalization)
  Sender: FDA-Public Use
  Company Number: JP-ROCHE-1379688

PATIENT
  Age: 75 Year
  Sex: Male
  Weight: 55 kg

DRUGS (7)
  1. RANIBIZUMAB [Suspect]
     Indication: AGE-RELATED MACULAR DEGENERATION
     Route: 050
     Dates: start: 20130627
  2. RANIBIZUMAB [Suspect]
     Route: 050
     Dates: start: 20131225
  3. RANIBIZUMAB [Suspect]
     Route: 050
     Dates: start: 20140224
  4. PRAVASTATIN SODIUM [Concomitant]
  5. FRANDOL [Concomitant]
  6. METHYLCOBALAMIN [Concomitant]
  7. REZALTAS [Concomitant]

REACTIONS (1)
  - Cerebral infarction [Unknown]
